FAERS Safety Report 14910430 (Version 1)
Quarter: 2018Q2

REPORT INFORMATION
  Report Type: Report from Study
  Country: DE (occurrence: DE)
  Receive Date: 20180517
  Receipt Date: 20180517
  Transmission Date: 20180711
  Serious: Yes (Other)
  Sender: FDA-Public Use
  Company Number: DE-BAYER-2018-092002

PATIENT
  Age: 15 Year
  Sex: Male

DRUGS (7)
  1. VITAMIN E [Suspect]
     Active Substance: .ALPHA.-TOCOPHEROL
     Dosage: 400 UNK, UNK
  2. VORINOSTAT [Suspect]
     Active Substance: VORINOSTAT
     Dosage: DAILY DOSE 300 MG
     Route: 048
  3. ARSENIC TRIOXIDE [Suspect]
     Active Substance: ARSENIC TRIOXIDE
     Dosage: 0.1 MG/KG, UNK
     Route: 048
  4. PACLITAXEL. [Suspect]
     Active Substance: PACLITAXEL
     Dosage: DAILY DOSE 200 MG/M2
     Route: 042
  5. TRIAMTERENE. [Suspect]
     Active Substance: TRIAMTERENE
     Dosage: 25 MG, UNK
     Route: 048
  6. SORAFENIB [Suspect]
     Active Substance: SORAFENIB
     Indication: EWING^S SARCOMA
     Dosage: DAILY DOSE 400 MG
     Route: 048
  7. TRETINOIN. [Suspect]
     Active Substance: TRETINOIN
     Dosage: 25 MG/M2, UNK
     Route: 048

REACTIONS (10)
  - Dyspnoea [None]
  - Anaemia [None]
  - Product use in unapproved indication [None]
  - Activated partial thromboplastin time prolonged [None]
  - Pneumonia [None]
  - Bone pain [None]
  - Thrombocytopenia [None]
  - Drug administered to patient of inappropriate age [None]
  - Off label use [None]
  - Lymphopenia [None]
